FAERS Safety Report 6836582-X (Version None)
Quarter: 2010Q3

REPORT INFORMATION
  Report Type: 
  Country: None (occurrence: None)
  Receive Date: 20100713
  Receipt Date: 20100705
  Transmission Date: 20110219
  Serious: Yes (Hospitalization)
  Sender: FDA-Public Use
  Company Number: UA-ABBOTT-10P-269-0653606-00

PATIENT
  Age: 48 Year
  Sex: Female

DRUGS (5)
  1. ALUVIA TABLETS 200MG/50MG [Suspect]
     Indication: HIV INFECTION
     Route: 048
     Dates: start: 20090914
  2. ALUVIA TABLETS 200MG/50MG [Suspect]
     Indication: IMMUNOSUPPRESSION
  3. ZIDOLAM [Concomitant]
     Indication: PRODUCT USED FOR UNKNOWN INDICATION
  4. AZITROHEXAL [Concomitant]
     Indication: PRODUCT USED FOR UNKNOWN INDICATION
  5. BISEPTOL [Concomitant]
     Indication: PRODUCT USED FOR UNKNOWN INDICATION

REACTIONS (7)
  - ABDOMINAL PAIN [None]
  - DIARRHOEA [None]
  - HEADACHE [None]
  - JAUNDICE [None]
  - MENINGISM [None]
  - NAUSEA [None]
  - VOMITING [None]
